FAERS Safety Report 8757593 (Version 1)
Quarter: 2012Q4

REPORT INFORMATION
  Report Type: 
  Country: US (occurrence: US)
  Receive Date: 20120828
  Receipt Date: 20120828
  Transmission Date: 20130627
  Serious: No
  Sender: FDA-Public Use
  Company Number: US-BAYER-2012-072763

PATIENT
  Age: 67 Year
  Sex: Male

DRUGS (6)
  1. STAXYN (FDT/ODT) [Suspect]
     Indication: ERECTILE DYSFUNCTION
     Dosage: 10 mg, ONCE
     Route: 048
  2. JANUMET [Concomitant]
     Indication: DIABETES MELLITUS
  3. ACTON [CORTICOTROPIN] [Concomitant]
     Indication: DIABETES MELLITUS
  4. GLIPIZIDE [Concomitant]
     Indication: DIABETES MELLITUS
  5. TERAZOSIN [Concomitant]
     Indication: HYPERTENSION
  6. METOPROLOL [Concomitant]
     Indication: HYPERTENSION

REACTIONS (3)
  - Erectile dysfunction [Not Recovered/Not Resolved]
  - Drug ineffective [None]
  - Product quality issue [None]
